FAERS Safety Report 17509211 (Version 1)
Quarter: 2020Q1

REPORT INFORMATION
  Report Type: Spontaneous
  Country: DE (occurrence: DE)
  Receive Date: 20200306
  Receipt Date: 20200306
  Transmission Date: 20200409
  Serious: Yes (Other)
  Sender: FDA-Public Use
  Company Number: DE-SA-2020SA021281

PATIENT
  Sex: Male
  Weight: 1.38 kg

DRUGS (11)
  1. CAFFEINE CITRATE. [Concomitant]
     Active Substance: CAFFEINE CITRATE
     Dosage: UNK
     Route: 065
     Dates: start: 20191021, end: 20191110
  2. VITAMIN K [Concomitant]
     Active Substance: PHYTONADIONE
     Route: 065
  3. MULTIBIONTA PLUS [Concomitant]
     Route: 065
  4. MORONAL [Concomitant]
     Active Substance: NYSTATIN
     Route: 065
  5. SODIUM CHLORIDE. [Concomitant]
     Active Substance: SODIUM CHLORIDE
     Route: 065
  6. OTRIVEN [Concomitant]
     Active Substance: XYLOMETAZOLINE HYDROCHLORIDE
     Route: 065
  7. VIGANTOL [COLECALCIFEROL] [Concomitant]
     Active Substance: CHOLECALCIFEROL
     Route: 065
  8. FERROSANOL [Concomitant]
     Active Substance: FERROUS GLUCONATE
     Dosage: UNK UNK, BID
     Route: 048
  9. VIGANTOLETTEN [Concomitant]
     Active Substance: CHOLECALCIFEROL
     Dosage: 500 IU
     Route: 048
  10. LEMTRADA [Suspect]
     Active Substance: ALEMTUZUMAB
     Route: 064
  11. INFLORAN BERNA [Concomitant]
     Route: 065

REACTIONS (13)
  - Congenital hyperthyroidism [Recovering/Resolving]
  - Respiratory disorder [Unknown]
  - Hyponatraemia [Unknown]
  - Hypertension [Unknown]
  - Premature baby [Unknown]
  - Muscle tone disorder [Unknown]
  - Agitation [Unknown]
  - Tachycardia [Unknown]
  - Atrial septal defect [Unknown]
  - Wound infection [Unknown]
  - Mitral valve incompetence [Unknown]
  - Anti-thyroid antibody positive [Unknown]
  - Inguinal hernia [Unknown]

NARRATIVE: CASE EVENT DATE: 20191021
